FAERS Safety Report 9264954 (Version 1)
Quarter: 2013Q2

REPORT INFORMATION
  Report Type: Spontaneous
  Country: AT (occurrence: AT)
  Receive Date: 20130501
  Receipt Date: 20130501
  Transmission Date: 20140414
  Serious: Yes (Hospitalization, Other)
  Sender: FDA-Public Use
  Company Number: AT-ACCORD-017377

PATIENT
  Sex: Male

DRUGS (7)
  1. MYCOPHENOLATE MOFETIL [Suspect]
     Indication: IMMUNOSUPPRESSION
  2. CYCLOSPORIN A [Concomitant]
     Indication: IMMUNOSUPPRESSION
     Dosage: TROUGH LEVELS?100-120 NG/ML
  3. RILMENIDINE [Concomitant]
     Indication: HYPERTENSION
  4. VALSARTAN/HYDROCHLOORTHIAZIDE [Concomitant]
     Indication: HYPERTENSION
  5. PREDNISOLON [Concomitant]
     Indication: IMMUNOSUPPRESSION
  6. AMLODIPINE [Concomitant]
     Indication: HYPERTENSION
  7. CARVEDILOL [Concomitant]
     Indication: HYPERTENSION

REACTIONS (3)
  - Pyrexia [Recovered/Resolved]
  - Interstitial lung disease [Recovering/Resolving]
  - Cytomegalovirus infection [Recovered/Resolved]
